FAERS Safety Report 6128397-5 (Version None)
Quarter: 2009Q1

REPORT INFORMATION
  Report Type: 
  Country: None (occurrence: None)
  Receive Date: 20090323
  Receipt Date: 20090311
  Transmission Date: 20090719
  Serious: Yes (Other)
  Sender: FDA-Public Use
  Company Number: FR-ROCHE-610929

PATIENT
  Sex: Female
  Weight: 54.6 kg

DRUGS (8)
  1. CELLCEPT [Suspect]
     Indication: IMMUNOSUPPRESSION
     Route: 048
     Dates: start: 20050420
  2. PROGRAF [Suspect]
     Indication: IMMUNOSUPPRESSANT DRUG THERAPY
     Route: 048
     Dates: start: 20070705
  3. CORTICOSTEROIDS [Concomitant]
  4. NEORAL [Concomitant]
  5. ICAZ LP [Concomitant]
     Indication: HYPERTENSION
     Route: 048
     Dates: start: 20050420
  6. LEVOTHYROXINE SODIUM [Concomitant]
     Indication: HYPOTHYROIDISM
     Route: 048
     Dates: start: 20050420
  7. APROVEL [Concomitant]
     Indication: HYPERTENSION
     Dates: start: 20050420
  8. MOPRAL [Concomitant]
     Route: 048
     Dates: start: 20050420

REACTIONS (1)
  - CHOROIDITIS [None]
